FAERS Safety Report 5405740-3 (Version None)
Quarter: 2007Q3

REPORT INFORMATION
  Report Type: 
  Country: None (occurrence: None)
  Receive Date: 20070806
  Receipt Date: 20070725
  Transmission Date: 20080115
  Serious: Yes (Hospitalization)
  Sender: FDA-Public Use
  Company Number: AR-JNJFOC-20070706068

PATIENT
  Age: 45 Year
  Sex: Female
  Weight: 120 kg

DRUGS (4)
  1. REMICADE [Suspect]
     Route: 042
  2. REMICADE [Suspect]
     Indication: PSORIASIS
     Dosage: 2 PRIOR INFUSIONS
     Route: 042
  3. EFALIZUMAB [Concomitant]
  4. CYCLOSPORINE [Concomitant]

REACTIONS (7)
  - ARTHRALGIA [None]
  - DIZZINESS [None]
  - DRUG HYPERSENSITIVITY [None]
  - DYSPHAGIA [None]
  - MYALGIA [None]
  - PYREXIA [None]
  - RASH [None]
